FAERS Safety Report 9266130 (Version 2)
Quarter: 2013Q2

REPORT INFORMATION
  Report Type: Spontaneous
  Country: IN (occurrence: IN)
  Receive Date: 20130502
  Receipt Date: 20130506
  Transmission Date: 20140414
  Serious: Yes (Other)
  Sender: FDA-Public Use
  Company Number: IN-MERCK-1304IND017138

PATIENT
  Age: 41 Year
  Sex: Male

DRUGS (1)
  1. JANUMET [Suspect]
     Dosage: UNK, BID
     Route: 048

REACTIONS (3)
  - Renal cancer [Unknown]
  - Nephrectomy [Unknown]
  - Metastases to lung [Unknown]
